FAERS Safety Report 5049787-8 (Version None)
Quarter: 2006Q3

REPORT INFORMATION
  Report Type: 
  Country: None (occurrence: None)
  Receive Date: 20060706
  Receipt Date: 20060623
  Transmission Date: 20061208
  Serious: Yes (Other)
  Sender: FDA-Public Use
  Company Number: 2006080733

PATIENT
  Sex: Female
  Weight: 69.8539 kg

DRUGS (4)
  1. GABAPENTIN [Suspect]
     Indication: NEUROPATHY PERIPHERAL
     Dosage: 1600 MG (800 MG, 2 IN 1 D)
  2. CAMPRAL [Concomitant]
  3. PROMETRIUM [Concomitant]
  4. NITROFURAN (NITROFURANTOIN) [Concomitant]

REACTIONS (2)
  - DRUG EFFECT DECREASED [None]
  - POOR PERIPHERAL CIRCULATION [None]
